FAERS Safety Report 25636532 (Version 1)
Quarter: 2025Q3

REPORT INFORMATION
  Report Type: Spontaneous
  Country: US (occurrence: US)
  Receive Date: 20250804
  Receipt Date: 20250804
  Transmission Date: 20251020
  Serious: No
  Sender: BAUSCH AND LOMB
  Company Number: US-BAUSCHBL-2025BNL013426

PATIENT
  Sex: Female

DRUGS (2)
  1. XIIDRA [Suspect]
     Active Substance: LIFITEGRAST
     Indication: Dry eye
     Dosage: ONE DROP IN BOTH EYES TWICE A DAY,
     Route: 047
     Dates: start: 202501, end: 202507
  2. XIIDRA [Suspect]
     Active Substance: LIFITEGRAST
     Dosage: ONE DROP IN BOTH EYES ONCE A DAY
     Route: 047
     Dates: start: 202507

REACTIONS (2)
  - Cough [Unknown]
  - Ill-defined disorder [Unknown]

NARRATIVE: CASE EVENT DATE: 20250101
